FAERS Safety Report 7808862-2 (Version None)
Quarter: 2011Q4

REPORT INFORMATION
  Report Type: 
  Country: None (occurrence: None)
  Receive Date: 20111012
  Receipt Date: 20111007
  Transmission Date: 20120403
  Serious: Yes (Death)
  Sender: FDA-Public Use
  Company Number: PHEH2011US03046

PATIENT
  Sex: Female
  Weight: 66.667 kg

DRUGS (1)
  1. EXJADE [Suspect]
     Indication: SICKLE CELL ANAEMIA
     Dosage: 2500 MG, QD
     Route: 048
     Dates: start: 20070105

REACTIONS (1)
  - DEATH [None]
